FAERS Safety Report 16236406 (Version 1)
Quarter: 2019Q2

REPORT INFORMATION
  Report Type: Report from Study
  Country: IT (occurrence: IT)
  Receive Date: 20190425
  Receipt Date: 20190425
  Transmission Date: 20190711
  Serious: Yes (Other)
  Sender: FDA-Public Use
  Company Number: IT-TEVA-2019-IT-1041853

PATIENT
  Age: 77 Year
  Sex: Male

DRUGS (2)
  1. AMIODARONE HYDROCHLORIDE. [Suspect]
     Active Substance: AMIODARONE HYDROCHLORIDE
     Indication: ATRIAL FIBRILLATION
     Dosage: .8 GRAM DAILY;
     Route: 048
     Dates: start: 20190319, end: 20190322
  2. ELIQUIS [Concomitant]
     Active Substance: APIXABAN
     Route: 048

REACTIONS (4)
  - Visual impairment [Recovering/Resolving]
  - Hyperhidrosis [Recovering/Resolving]
  - Malaise [Recovering/Resolving]
  - Asthenia [Recovering/Resolving]

NARRATIVE: CASE EVENT DATE: 20190319
